FAERS Safety Report 13000353 (Version 1)
Quarter: 2016Q4

REPORT INFORMATION
  Report Type: Spontaneous
  Country: US (occurrence: US)
  Receive Date: 20161206
  Receipt Date: 20161206
  Transmission Date: 20170207
  Serious: Yes (Hospitalization, Other)
  Sender: FDA-Public Use
  Company Number: US-ROCHE-1862778

PATIENT
  Age: 57 Year
  Sex: Female
  Weight: 75.5 kg

DRUGS (4)
  1. ATORVASTATIN [Concomitant]
     Active Substance: ATORVASTATIN
  2. KADCYLA [Suspect]
     Active Substance: ADO-TRASTUZUMAB EMTANSINE
     Indication: BREAST CANCER
     Route: 042
     Dates: start: 20161117
  3. LIDOCAINE. [Concomitant]
     Active Substance: LIDOCAINE
  4. ONDANSETRON [Concomitant]
     Active Substance: ONDANSETRON

REACTIONS (9)
  - Cough [Unknown]
  - Breath sounds abnormal [Unknown]
  - Malaise [Unknown]
  - Headache [Unknown]
  - Aneurysm [Unknown]
  - Meningitis [Unknown]
  - Pyrexia [Unknown]
  - Musculoskeletal stiffness [Unknown]
  - Atelectasis [Unknown]

NARRATIVE: CASE EVENT DATE: 20161123
